FAERS Safety Report 7048364-7 (Version None)
Quarter: 2010Q4

REPORT INFORMATION
  Report Type: 
  Country: None (occurrence: None)
  Receive Date: 20101015
  Receipt Date: 20101006
  Transmission Date: 20110411
  Serious: Yes (Other)
  Sender: FDA-Public Use
  Company Number: US-ABBOTT-10P-163-0676671-00

PATIENT
  Sex: Male
  Weight: 99.88 kg

DRUGS (10)
  1. NIASPAN [Suspect]
     Indication: HIGH DENSITY LIPOPROTEIN DECREASED
     Dosage: AT BEDTIME, HELD 10 DAYS FOR SURGERY
     Dates: start: 20100901
  2. NIASPAN [Suspect]
  3. LIPITOR [Concomitant]
     Indication: PRODUCT USED FOR UNKNOWN INDICATION
  4. ZETIA [Concomitant]
     Indication: PRODUCT USED FOR UNKNOWN INDICATION
  5. UNKNOWN THYROID MEDICATION [Concomitant]
     Indication: THYROID DISORDER
  6. METFORMIN HCL [Concomitant]
     Indication: DIABETES MELLITUS
     Dosage: 2000 MG DAILY
  7. HUMOLOG INSULIN [Concomitant]
     Indication: DIABETES MELLITUS
  8. LANTUS [Concomitant]
     Indication: DIABETES MELLITUS
  9. FISH OIL [Concomitant]
     Indication: SUPPLEMENTATION THERAPY
  10. ASPIRIN [Concomitant]
     Indication: PRODUCT USED FOR UNKNOWN INDICATION
     Dosage: 81 MG - 325 MG

REACTIONS (2)
  - FLUSHING [None]
  - UMBILICAL HERNIA [None]
